FAERS Safety Report 7403220-7 (Version None)
Quarter: 2011Q2

REPORT INFORMATION
  Report Type: 
  Country: None (occurrence: None)
  Receive Date: 20110408
  Receipt Date: 20110330
  Transmission Date: 20111010
  Serious: Yes (Other)
  Sender: FDA-Public Use
  Company Number: JP-SANOFI-AVENTIS-2011SA012929

PATIENT
  Age: 58 Year
  Sex: Female
  Weight: 61.4 kg

DRUGS (5)
  1. GRANISETRON HCL [Concomitant]
     Route: 041
     Dates: start: 20100819
  2. TAXOTERE [Suspect]
     Route: 041
     Dates: start: 20110210, end: 20110210
  3. HUMULIN N [Concomitant]
     Indication: PROPHYLAXIS
     Dosage: DOSE:4 UNIT(S)
     Route: 058
     Dates: start: 20100819
  4. DEXAMETHASONE SODIUM PHOSPHATE [Concomitant]
     Route: 041
     Dates: start: 20100819
  5. TAXOTERE [Suspect]
     Indication: BREAST CANCER
     Route: 041
     Dates: start: 20100819, end: 20100819

REACTIONS (4)
  - PLEURAL EFFUSION [None]
  - HYPOPROTEINAEMIA [None]
  - HYPOALBUMINAEMIA [None]
  - OEDEMA [None]
